FAERS Safety Report 4598921-2 (Version None)
Quarter: 2005Q1

REPORT INFORMATION
  Report Type: 
  Country: None (occurrence: None)
  Receive Date: 20050302
  Receipt Date: 20050218
  Transmission Date: 20050727
  Serious: Yes (Life-Threatening, Hospitalization)
  Sender: FDA-Public Use
  Company Number: 8008205

PATIENT
  Age: 47 Year
  Sex: Female

DRUGS (1)
  1. KEPPRA [Suspect]
     Indication: COMPLEX PARTIAL SEIZURES
     Dosage: 1000 MG 2/D PO
     Route: 048
     Dates: start: 20020101

REACTIONS (2)
  - CHROMOSOME ABNORMALITY [None]
  - MYELODYSPLASTIC SYNDROME [None]
